FAERS Safety Report 9239551 (Version 1)
Quarter: 2013Q2

REPORT INFORMATION
  Report Type: Spontaneous
  Country: US (occurrence: US)
  Receive Date: 20130418
  Receipt Date: 20130418
  Transmission Date: 20140414
  Serious: No
  Sender: FDA-Public Use
  Company Number: US-PFIZER INC-2013121205

PATIENT
  Age: 54 Year
  Sex: Male
  Weight: 95.24 kg

DRUGS (4)
  1. VIAGRA [Suspect]
     Dosage: 100 MG, SINGLE
     Dates: start: 20130414, end: 20130414
  2. METFORMIN [Concomitant]
     Indication: DIABETES MELLITUS
     Dosage: 1000 MG, 2X/DAY
  3. GLIMEPIRIDE [Concomitant]
     Indication: DIABETES MELLITUS
     Dosage: 2 MG, 1X/DAY
  4. ATORVASTATIN [Concomitant]
     Indication: HYPERTENSION
     Dosage: 40 MG, 1X/DAY

REACTIONS (1)
  - Drug ineffective [Unknown]
